FAERS Safety Report 9678513 (Version 1)
Quarter: 2013Q4

REPORT INFORMATION
  Report Type: Spontaneous
  Country: US (occurrence: US)
  Receive Date: 20131108
  Receipt Date: 20131108
  Transmission Date: 20140711
  Serious: No
  Sender: FDA-Public Use
  Company Number: US-BAXTER-2013BAX043873

PATIENT
  Sex: Female

DRUGS (8)
  1. GAMMAGARD S/D [Suspect]
     Indication: IMMUNODEFICIENCY COMMON VARIABLE
     Route: 042
     Dates: start: 1990
  2. LOVENOX [Concomitant]
     Indication: PULMONARY EMBOLISM
     Route: 058
     Dates: start: 1990
  3. LAMICTAL [Concomitant]
     Indication: CONVULSION
     Route: 048
     Dates: start: 2013
  4. SYNTHROID [Concomitant]
     Indication: THYROID CANCER
     Route: 048
     Dates: start: 1996
  5. SYNTHROID [Concomitant]
     Indication: THYROID CANCER
  6. CYTOMEL [Concomitant]
     Indication: THYROID CANCER
     Route: 048
     Dates: start: 1996
  7. CYTOMEL [Concomitant]
     Indication: THYROID CANCER
  8. PREDNISONE [Concomitant]
     Indication: PRODUCT USED FOR UNKNOWN INDICATION
     Route: 048

REACTIONS (2)
  - Headache [Recovered/Resolved]
  - Headache [Recovering/Resolving]
